FAERS Safety Report 24734244 (Version 1)
Quarter: 2024Q4

REPORT INFORMATION
  Report Type: Spontaneous
  Country: HK (occurrence: HK)
  Receive Date: 20241214
  Receipt Date: 20241214
  Transmission Date: 20250115
  Serious: No
  Sender: ALKEM
  Company Number: HK-ALKEM LABORATORIES LIMITED-HK-ALKEM-2024-04884

PATIENT

DRUGS (6)
  1. MYCOPHENOLATE MOFETIL [Suspect]
     Active Substance: MYCOPHENOLATE MOFETIL
     Indication: Lupus nephritis
     Dosage: UNK
     Route: 065
  2. TACROLIMUS [Suspect]
     Active Substance: TACROLIMUS
     Indication: Lupus nephritis
     Dosage: UNK
     Route: 065
  3. METHYLPREDNISOLONE [Suspect]
     Active Substance: METHYLPREDNISOLONE
     Indication: Lupus nephritis
     Dosage: 0.25 TO 0.5 GRAM/DAY FOR UP TO 3 DAYS
     Route: 065
  4. PREDNISOLONE [Suspect]
     Active Substance: PREDNISOLONE
     Indication: Lupus nephritis
     Dosage: 0.6-0.8 MILLIGRAM/KILOGRAM QD
     Route: 048
  5. PREDNISOLONE [Suspect]
     Active Substance: PREDNISOLONE
     Dosage: 5 MG/D (AFTER 18 TO 24 WEEKS) (TAPERED DOSE)
     Route: 065
  6. PREDNISOLONE [Suspect]
     Active Substance: PREDNISOLONE
     Dosage: UNK (TAPERED DOSE)
     Route: 065

REACTIONS (1)
  - Therapy partial responder [Unknown]
